FAERS Safety Report 8956576 (Version 1)
Quarter: 2012Q4

REPORT INFORMATION
  Report Type: Report from Study
  Country: GB (occurrence: BR)
  Receive Date: 20121210
  Receipt Date: 20121210
  Transmission Date: 20130627
  Serious: Yes (Other)
  Sender: FDA-Public Use
  Company Number: GB-SANOFI-AVENTIS-2012SA086525

PATIENT
  Age: 48 Year

DRUGS (2)
  1. PRIMAQUINE PHOSPHATE [Suspect]
     Indication: VIVAX MALARIA (BENIGN TERTIAN)
     Route: 048
     Dates: start: 20120906
  2. CHLOROQUINE [Suspect]
     Indication: VIVAX MALARIA (BENIGN TERTIAN)
     Route: 048
     Dates: start: 20120905

REACTIONS (1)
  - Electrocardiogram QT prolonged [Recovered/Resolved]
